FAERS Safety Report 5877092-6 (Version None)
Quarter: 2008Q3

REPORT INFORMATION
  Report Type: 
  Country: None (occurrence: None)
  Receive Date: 20080910
  Receipt Date: 20080904
  Transmission Date: 20090109
  Serious: Yes (Other)
  Sender: FDA-Public Use
  Company Number: PHHY2008FR20396

PATIENT
  Sex: Female

DRUGS (4)
  1. TEGRETOL [Suspect]
     Indication: GRAND MAL CONVULSION
     Dosage: 400 MG, BID
  2. TEGRETOL [Suspect]
     Dosage: 400 MG, QD
     Dates: start: 20080101, end: 20080601
  3. TEGRETOL [Suspect]
     Dosage: 400 MG, ALTERNATE DAY
  4. TAHOR [Concomitant]

REACTIONS (1)
  - ASTHENIA [None]
